FAERS Safety Report 23909601 (Version 1)
Quarter: 2024Q2

REPORT INFORMATION
  Report Type: Spontaneous
  Country: US (occurrence: US)
  Receive Date: 20240528
  Receipt Date: 20240528
  Transmission Date: 20240716
  Serious: No
  Sender: FDA-Public Use
  Company Number: US-PERRIGO-23US007935

PATIENT
  Sex: Female

DRUGS (1)
  1. MINOXIDIL [Suspect]
     Active Substance: MINOXIDIL
     Indication: Product used for unknown indication
     Dosage: UNK, EVERY 3 DAYS
     Route: 061
     Dates: start: 2013

REACTIONS (3)
  - Heart rate increased [Unknown]
  - Inappropriate schedule of product administration [Unknown]
  - Expired product administered [None]

NARRATIVE: CASE EVENT DATE: 20130101
